FAERS Safety Report 9790016 (Version 1)
Quarter: 2013Q4

REPORT INFORMATION
  Report Type: Spontaneous
  Country: US (occurrence: US)
  Receive Date: 20131231
  Receipt Date: 20131231
  Transmission Date: 20140711
  Serious: No
  Sender: FDA-Public Use
  Company Number: US-009507513-1312USA008679

PATIENT
  Age: 72 Year
  Sex: Female
  Weight: 53.97 kg

DRUGS (3)
  1. OXYTROL FOR WOMEN [Suspect]
     Indication: URINARY INCONTINENCE
     Dosage: 1 DF, Q4D
     Route: 062
     Dates: start: 20131005, end: 20131105
  2. RESTASIS [Concomitant]
     Indication: DRY EYE
     Dosage: UNK, BID
     Route: 046
  3. ESTRADIOL [Concomitant]
     Indication: OESTROGEN REPLACEMENT THERAPY
     Dosage: UNK, UNKNOWN

REACTIONS (2)
  - Skin irritation [Unknown]
  - Product quality issue [Unknown]
